FAERS Safety Report 4887976-3 (Version None)
Quarter: 2006Q1

REPORT INFORMATION
  Report Type: 
  Country: None (occurrence: None)
  Receive Date: 20060123
  Receipt Date: 20051005
  Transmission Date: 20060701
  Serious: Yes (Death, Hospitalization, Other)
  Sender: FDA-Public Use
  Company Number: US-MERCK-0510USA04300

PATIENT
  Age: 83 Year
  Sex: Female
  Weight: 61 kg

DRUGS (4)
  1. VIOXX [Suspect]
     Indication: BACK PAIN
     Route: 048
     Dates: start: 20011001
  2. VIOXX [Suspect]
     Route: 048
     Dates: start: 20011001
  3. VITAMINS (UNSPECIFIED) [Concomitant]
     Route: 065
  4. ASPIRIN [Concomitant]
     Route: 065

REACTIONS (25)
  - AORTIC ANEURYSM [None]
  - AORTIC ARTERIOSCLEROSIS [None]
  - CARDIOMEGALY [None]
  - CARDIOPULMONARY FAILURE [None]
  - CARDIOVASCULAR DISORDER [None]
  - CAROTID ARTERY STENOSIS [None]
  - CATARACT [None]
  - CEREBRAL ATROPHY [None]
  - CEREBRAL INFARCTION [None]
  - CEREBROVASCULAR ACCIDENT [None]
  - COMPRESSION FRACTURE [None]
  - CONFUSIONAL STATE [None]
  - COUGH [None]
  - EMPHYSEMA [None]
  - FALL [None]
  - FATIGUE [None]
  - HAEMORRHAGE [None]
  - HEMIPARESIS [None]
  - ISCHAEMIC STROKE [None]
  - KYPHOSIS [None]
  - LOSS OF CONSCIOUSNESS [None]
  - LUNG DISORDER [None]
  - OSTEOPOROSIS [None]
  - PULMONARY FIBROSIS [None]
  - SPINAL OSTEOARTHRITIS [None]
